FAERS Safety Report 15781233 (Version 1)
Quarter: 2018Q4

REPORT INFORMATION
  Report Type: Spontaneous
  Country: US (occurrence: US)
  Receive Date: 20181231
  Receipt Date: 20181231
  Transmission Date: 20190205
  Serious: Yes (Other)
  Sender: FDA-Public Use
  Company Number: None

PATIENT
  Age: 52 Year
  Sex: Female
  Weight: 56.25 kg

DRUGS (1)
  1. AIMOVIG [Suspect]
     Active Substance: ERENUMAB-AOOE
     Indication: MIGRAINE
     Dosage: ?          OTHER FREQUENCY:MONTHLY;?
     Route: 030
     Dates: start: 20180731, end: 20181129

REACTIONS (10)
  - Nausea [None]
  - Cognitive disorder [None]
  - Suicidal ideation [None]
  - Constipation [None]
  - Decreased appetite [None]
  - Fatigue [None]
  - Vertigo [None]
  - Depression [None]
  - Migraine [None]
  - Musculoskeletal stiffness [None]

NARRATIVE: CASE EVENT DATE: 20181207
